FAERS Safety Report 25412552 (Version 2)
Quarter: 2025Q2

REPORT INFORMATION
  Report Type: Spontaneous
  Country: NZ (occurrence: NZ)
  Receive Date: 20250609
  Receipt Date: 20250620
  Transmission Date: 20250716
  Serious: Yes (Life-Threatening, Hospitalization)
  Sender: MYLAN
  Company Number: NZ-MYLANLABS-2025M1047804

PATIENT
  Age: 56 Year
  Sex: Male

DRUGS (5)
  1. CLOZARIL [Suspect]
     Active Substance: CLOZAPINE
     Indication: Schizophrenia
  2. CLOZARIL [Suspect]
     Active Substance: CLOZAPINE
     Dosage: UNK, TID (75MG 08:00, 75MG 18:00 AND 500MG 20:00)
  3. CLOZARIL [Suspect]
     Active Substance: CLOZAPINE
     Dosage: 75 MILLIGRAM, AM (MANE)
     Dates: start: 20250601, end: 20250601
  4. CLOZARIL [Suspect]
     Active Substance: CLOZAPINE
     Dosage: 300 MILLIGRAM, PM (NOCTE)
     Dates: start: 20250602
  5. VALPROATE SODIUM [Suspect]
     Active Substance: VALPROATE SODIUM
     Indication: Product used for unknown indication
     Dosage: 1500 MILLIGRAM, PM (NOCTE)

REACTIONS (5)
  - Agranulocytosis [Not Recovered/Not Resolved]
  - Antipsychotic drug level increased [Not Recovered/Not Resolved]
  - Sedation [Unknown]
  - Pneumonia [Unknown]
  - Constipation [Unknown]

NARRATIVE: CASE EVENT DATE: 20230417
